FAERS Safety Report 8067297 (Version 3)
Quarter: 2013Q1

REPORT INFORMATION
  Report Type: Spontaneous
  Country: US (occurrence: US)
  Receive Date: 20110803
  Receipt Date: 20130219
  Transmission Date: 20140127
  Serious: Yes (Hospitalization, Other)
  Sender: FDA-Public Use
  Company Number: US-BAXTER-2011BH024390

PATIENT
  Age: 56 Year
  Sex: Female
  Weight: 63.6 kg

DRUGS (9)
  1. GAMMAGARD LIQUID [Suspect]
     Indication: IMMUNODEFICIENCY
     Route: 042
     Dates: start: 20110706, end: 20110706
  2. GAMMAGARD LIQUID [Suspect]
     Route: 042
     Dates: start: 20110614
  3. FISH OIL [Concomitant]
     Indication: CARDIAC DISORDER
     Route: 065
  4. CALCIUM [Concomitant]
     Indication: MINERAL SUPPLEMENTATION
     Route: 065
  5. MUCINEX [Concomitant]
     Indication: LUNG DISORDER
     Route: 065
  6. PAXIL [Concomitant]
     Indication: DEPRESSION
     Route: 065
  7. THEO-24 [Concomitant]
     Indication: LUNG DISORDER
     Route: 065
  8. PRILOSEC [Concomitant]
     Indication: GASTROOESOPHAGEAL REFLUX DISEASE
     Route: 065
  9. ADVAIR [Concomitant]
     Indication: LUNG DISORDER
     Route: 065

REACTIONS (2)
  - Chronic obstructive pulmonary disease [Recovered/Resolved]
  - Wheezing [Unknown]
